FAERS Safety Report 14875360 (Version 2)
Quarter: 2019Q3

REPORT INFORMATION
  Report Type: Report from Study
  Country: CN (occurrence: CN)
  Receive Date: 20180510
  Receipt Date: 20190725
  Transmission Date: 20191004
  Serious: Yes (Hospitalization)
  Sender: FDA-Public Use
  Company Number: CN-SA-2018SA103807

PATIENT
  Age: 50 Year
  Sex: Male
  Weight: 76 kg

DRUGS (6)
  1. RIFAPENTINE [Concomitant]
     Active Substance: RIFAPENTINE
     Dosage: UNK
     Route: 065
  2. ANTI-THYMOCYTE GLOBULIN (RABBIT) NOS [Suspect]
     Active Substance: LAPINE T-LYMPHOCYTE IMMUNE GLOBULIN
     Indication: BONE MARROW CONDITIONING REGIMEN
     Dosage: 75 MG,QD
     Route: 042
     Dates: start: 20180207, end: 20180207
  3. ANTI-THYMOCYTE GLOBULIN (RABBIT) NOS [Suspect]
     Active Substance: LAPINE T-LYMPHOCYTE IMMUNE GLOBULIN
     Dosage: 25 MG,QD
     Route: 042
     Dates: start: 20180212, end: 20180212
  4. METHYLPREDNISOLONE. [Concomitant]
     Active Substance: METHYLPREDNISOLONE
     Indication: BONE MARROW CONDITIONING REGIMEN
     Dosage: UNK
     Route: 065
     Dates: start: 2018
  5. ANTI-THYMOCYTE GLOBULIN (RABBIT) NOS [Suspect]
     Active Substance: LAPINE T-LYMPHOCYTE IMMUNE GLOBULIN
     Dosage: 50 MG,QD
     Route: 042
     Dates: start: 20180208, end: 20180211
  6. SMECTA [Concomitant]
     Active Substance: MONTMORILLONITE
     Dosage: UNK UNK,UNK
     Route: 065

REACTIONS (1)
  - Tuberculous pleurisy [Recovered/Resolved]

NARRATIVE: CASE EVENT DATE: 20180403
